FAERS Safety Report 6306253-7 (Version None)
Quarter: 2009Q3

REPORT INFORMATION
  Report Type: 
  Country: None (occurrence: None)
  Receive Date: 20090812
  Receipt Date: 20090731
  Transmission Date: 20100115
  Serious: Yes (Hospitalization)
  Sender: FDA-Public Use
  Company Number: PHFR2005GB02830

PATIENT
  Sex: Female

DRUGS (2)
  1. CLOZARIL [Suspect]
     Indication: SCHIZOPHRENIA
     Dosage: 100 MG/DAY
     Route: 048
     Dates: start: 20050712
  2. VENLAFAXINE HYDROCHLORIDE [Concomitant]
     Indication: DEPRESSION
     Dosage: 225 MG/DAY
     Route: 048

REACTIONS (6)
  - CELLULITIS [None]
  - DECUBITUS ULCER [None]
  - DIABETIC ULCER [None]
  - DIARRHOEA [None]
  - SEPSIS [None]
  - SEPTIC SHOCK [None]
